FAERS Safety Report 15681269 (Version 1)
Quarter: 2018Q4

REPORT INFORMATION
  Report Type: Report from Study
  Country: US (occurrence: US)
  Receive Date: 20181203
  Receipt Date: 20181203
  Transmission Date: 20190205
  Serious: Yes (Other)
  Sender: FDA-Public Use
  Company Number: US-SA-2018SA267499

PATIENT
  Sex: Female

DRUGS (1)
  1. ALEMTUZUMAB [Suspect]
     Active Substance: ALEMTUZUMAB
     Dosage: UNK UNK, QD
     Route: 041
     Dates: start: 20180827, end: 20180829

REACTIONS (11)
  - Streptococcal infection [Unknown]
  - Memory impairment [Not Recovered/Not Resolved]
  - Urinary retention [Not Recovered/Not Resolved]
  - Contusion [Not Recovered/Not Resolved]
  - Joint swelling [Not Recovered/Not Resolved]
  - Keloid scar [Not Recovered/Not Resolved]
  - Skin papilloma [Recovered/Resolved]
  - Peripheral swelling [Not Recovered/Not Resolved]
  - Hypothyroidism [Not Recovered/Not Resolved]
  - Chest pain [Unknown]
  - Blood pressure increased [Unknown]
